FAERS Safety Report 19104568 (Version 1)
Quarter: 2021Q2

REPORT INFORMATION
  Report Type: Spontaneous
  Country: US (occurrence: US)
  Receive Date: 20210407
  Receipt Date: 20210407
  Transmission Date: 20210717
  Serious: No
  Sender: FDA-Public Use
  Company Number: US-ASTRAZENECA-2021A146836

PATIENT
  Age: 24710 Day
  Sex: Female
  Weight: 44.9 kg

DRUGS (1)
  1. PULMICORT TURBUHALER [Suspect]
     Active Substance: BUDESONIDE
     Indication: ASTHMA
     Dosage: 180MCG 3 PUFFS TWICE A DAY
     Route: 055
     Dates: start: 20210127

REACTIONS (6)
  - Drug ineffective [Unknown]
  - Lung disorder [Unknown]
  - Dyspnoea [Unknown]
  - Visual impairment [Unknown]
  - Vision blurred [Unknown]
  - Headache [Unknown]

NARRATIVE: CASE EVENT DATE: 20210304
